FAERS Safety Report 12492613 (Version 1)
Quarter: 2016Q2

REPORT INFORMATION
  Report Type: Spontaneous
  Country: US (occurrence: US)
  Receive Date: 20160623
  Receipt Date: 20160623
  Transmission Date: 20160815
  Serious: No
  Sender: FDA-Public Use
  Company Number: US-GLAXOSMITHKLINE-US2016084591

PATIENT
  Age: 2 Year
  Sex: Male

DRUGS (3)
  1. NEBULIZER (NAME UNKNOWN) [Concomitant]
     Active Substance: DEVICE
  2. FLOVENT DISKUS [Suspect]
     Active Substance: FLUTICASONE PROPIONATE
     Indication: ASTHMA
     Dosage: 2 PUFF(S), BID
     Route: 055
     Dates: start: 20160604, end: 20160611
  3. ALBUTEROL INHALER [Concomitant]
     Active Substance: ALBUTEROL

REACTIONS (7)
  - Aggression [Unknown]
  - Insomnia [Recovered/Resolved]
  - Sleep terror [Unknown]
  - Injury [Unknown]
  - Eye contusion [Unknown]
  - Off label use [Unknown]
  - Screaming [Unknown]

NARRATIVE: CASE EVENT DATE: 20160605
